FAERS Safety Report 10269165 (Version 1)
Quarter: 2014Q2

REPORT INFORMATION
  Report Type: Spontaneous
  Country: US (occurrence: US)
  Receive Date: 20140630
  Receipt Date: 20140630
  Transmission Date: 20141212
  Serious: No
  Sender: FDA-Public Use
  Company Number: US-SA-2014SA039475

PATIENT
  Age: 54 Year
  Sex: Female
  Weight: 127 kg

DRUGS (1)
  1. HECTOROL [Suspect]
     Indication: HYPERPARATHYROIDISM
     Route: 042
     Dates: start: 20140110, end: 20140113

REACTIONS (5)
  - Feeling abnormal [Unknown]
  - Flushing [Unknown]
  - Pruritus [Unknown]
  - Dyspnoea [Recovered/Resolved]
  - Dyspepsia [Recovered/Resolved]
